FAERS Safety Report 6125273-9 (Version None)
Quarter: 2009Q1

REPORT INFORMATION
  Report Type: 
  Country: None (occurrence: None)
  Receive Date: 20090320
  Receipt Date: 20090311
  Transmission Date: 20090719
  Serious: Yes (Other)
  Sender: FDA-Public Use
  Company Number: PHHY2009GB01511

PATIENT
  Age: 75 Year
  Sex: Female

DRUGS (6)
  1. CARBAMAZEPINE [Suspect]
     Indication: CONVULSION
     Dosage: 100 MG, BID
     Route: 048
     Dates: start: 20080401
  2. ASPIRIN [Concomitant]
     Dosage: 75 MG, QD
  3. ATENOLOL [Concomitant]
     Dosage: 50 MG, UNK
     Route: 048
  4. EZETIMIBE [Concomitant]
     Dosage: 10 MG, UNK
     Route: 048
     Dates: end: 20080801
  5. LOSARTAN [Concomitant]
     Dosage: 50 MG, UNK
     Route: 048
  6. ZOPICLONE [Concomitant]
     Route: 048

REACTIONS (4)
  - ANDROGEN DEFICIENCY [None]
  - ANTINUCLEAR ANTIBODY POSITIVE [None]
  - HYPOPARATHYROIDISM [None]
  - SYSTEMIC LUPUS ERYTHEMATOSUS [None]
